FAERS Safety Report 6382542-5 (Version None)
Quarter: 2009Q3

REPORT INFORMATION
  Report Type: 
  Country: None (occurrence: None)
  Receive Date: 20090930
  Receipt Date: 20090922
  Transmission Date: 20100115
  Serious: Yes (Hospitalization)
  Sender: FDA-Public Use
  Company Number: A0808177A

PATIENT
  Age: 56 Year
  Sex: Male

DRUGS (8)
  1. AVANDIA [Suspect]
     Dosage: 4MG TWICE PER DAY
     Dates: start: 20040101, end: 20070301
  2. AVANDAMET [Suspect]
     Indication: DIABETES MELLITUS
     Route: 048
  3. ACCUPRIL [Concomitant]
  4. METOPROLOL SUCCINATE [Concomitant]
  5. GLUCOPHAGE [Concomitant]
  6. COLACE [Concomitant]
  7. LEVAQUIN [Concomitant]
  8. VICODIN [Concomitant]

REACTIONS (2)
  - CARDIAC FAILURE CONGESTIVE [None]
  - CORONARY ARTERY DISEASE [None]
